FAERS Safety Report 8998292 (Version 1)
Quarter: 2013Q1

REPORT INFORMATION
  Report Type: Report from Study
  Country: AU (occurrence: AU)
  Receive Date: 20130104
  Receipt Date: 20130104
  Transmission Date: 20140127
  Serious: Yes (Other)
  Sender: FDA-Public Use
  Company Number: PHHO2011AU02838

PATIENT
  Age: 60 Year
  Sex: Male
  Weight: 115 kg

DRUGS (5)
  1. ACZ885 [Suspect]
     Indication: GOUT
     Dosage: 40 MG, UNK
     Route: 030
     Dates: start: 20100309
  2. CARTIA [Concomitant]
     Indication: PROPHYLAXIS
  3. ZYLOPRIM [Concomitant]
     Indication: GOUT
  4. PARIET [Concomitant]
     Indication: BARRETT^S OESOPHAGUS
  5. VYTORIN [Concomitant]
     Indication: HYPERCHOLESTEROLAEMIA

REACTIONS (1)
  - Basal cell carcinoma [Recovered/Resolved]
